FAERS Safety Report 8018901-4 (Version None)
Quarter: 2012Q1

REPORT INFORMATION
  Report Type: 
  Country: None (occurrence: None)
  Receive Date: 20120103
  Receipt Date: 20111228
  Transmission Date: 20120608
  Serious: Yes (Hospitalization, Other)
  Sender: FDA-Public Use
  Company Number: ES-PFIZER INC-2011315544

PATIENT
  Age: 22 Year
  Sex: Male
  Weight: 102.3 kg

DRUGS (8)
  1. SOMATROPIN [Suspect]
     Indication: GROWTH HORMONE DEFICIENCY
     Dosage: 1 MG, DAILY
     Dates: start: 20080403, end: 20081001
  2. DESMOPRESSIN [Concomitant]
     Indication: BLOOD ANTIDIURETIC HORMONE DECREASED
     Dosage: UNK
     Route: 048
     Dates: start: 20010701
  3. TESTOSTERONE [Concomitant]
     Indication: BLOOD LUTEINISING HORMONE DECREASED
  4. THYROXINE ^APS^ [Concomitant]
     Indication: PRIMARY HYPOTHYROIDISM
     Dosage: UNK
     Route: 048
     Dates: start: 20010701
  5. HIDROALTESONA [Concomitant]
     Indication: BLOOD CORTICOTROPHIN DECREASED
     Dosage: UNK
     Route: 048
     Dates: start: 20010701
  6. THYROXINE ^APS^ [Concomitant]
     Indication: BLOOD THYROID STIMULATING HORMONE DECREASED
  7. TESTOSTERONE [Concomitant]
     Indication: BLOOD FOLLICLE STIMULATING HORMONE DECREASED
     Dosage: UNK
     Route: 062
     Dates: start: 20080124
  8. TESTOSTERONE [Concomitant]
     Indication: HYPOGONADISM

REACTIONS (2)
  - CRANIOPHARYNGIOMA [None]
  - NEOPLASM RECURRENCE [None]
